FAERS Safety Report 15004073 (Version 1)
Quarter: 2018Q2

REPORT INFORMATION
  Report Type: Spontaneous
  Country: IT (occurrence: IT)
  Receive Date: 20180613
  Receipt Date: 20180613
  Transmission Date: 20180711
  Serious: Yes (Other)
  Sender: FDA-Public Use
  Company Number: IT-ZYDUS-020459

PATIENT
  Age: 71 Year
  Sex: Male

DRUGS (8)
  1. BENDROFLUMETHIAZIDE [Interacting]
     Active Substance: BENDROFLUMETHIAZIDE
     Indication: PRODUCT USED FOR UNKNOWN INDICATION
     Route: 065
  2. ISOSORBIDE. [Interacting]
     Active Substance: ISOSORBIDE
     Indication: PRODUCT USED FOR UNKNOWN INDICATION
     Route: 065
  3. ACETYLSALICYLIC ACID [Interacting]
     Active Substance: ASPIRIN
     Indication: PRODUCT USED FOR UNKNOWN INDICATION
     Route: 065
  4. RAMIPRIL. [Interacting]
     Active Substance: RAMIPRIL
     Indication: PRODUCT USED FOR UNKNOWN INDICATION
     Route: 065
  5. CLOPIDOGREL [Suspect]
     Active Substance: CLOPIDOGREL BISULFATE
     Indication: PRODUCT USED FOR UNKNOWN INDICATION
     Route: 065
  6. INFLUENZA VACCINE [Interacting]
     Active Substance: INFLUENZA VIRUS VACCINE
     Indication: IMMUNISATION
     Route: 065
  7. SIMVASTATIN. [Interacting]
     Active Substance: SIMVASTATIN
     Indication: PRODUCT USED FOR UNKNOWN INDICATION
     Route: 065
  8. ATENOLOL. [Interacting]
     Active Substance: ATENOLOL
     Indication: PRODUCT USED FOR UNKNOWN INDICATION
     Route: 065

REACTIONS (3)
  - Drug interaction [Recovered/Resolved]
  - Renal impairment [Recovered/Resolved]
  - Rhabdomyolysis [Recovered/Resolved]
